FAERS Safety Report 12577103 (Version 1)
Quarter: 2016Q3

REPORT INFORMATION
  Report Type: Spontaneous
  Country: BR (occurrence: BR)
  Receive Date: 20160720
  Receipt Date: 20160720
  Transmission Date: 20161109
  Serious: Yes (Other)
  Sender: FDA-Public Use
  Company Number: BR-ABBVIE-16P-020-1681176-00

PATIENT
  Age: 14 Year
  Sex: Female

DRUGS (4)
  1. DEPAKOTE SPRINKLES [Suspect]
     Active Substance: DIVALPROEX SODIUM
     Indication: CEREBROVASCULAR ACCIDENT
     Dosage: IN THE MORNING
     Route: 065
  2. DEPAKOTE [Suspect]
     Active Substance: DIVALPROEX SODIUM
     Indication: PRODUCT USED FOR UNKNOWN INDICATION
     Dosage: AT AFTERNOON
     Route: 065
  3. DEPAKOTE [Suspect]
     Active Substance: DIVALPROEX SODIUM
     Route: 065
  4. LAMOTRIGINE. [Concomitant]
     Active Substance: LAMOTRIGINE
     Indication: PRODUCT USED FOR UNKNOWN INDICATION

REACTIONS (2)
  - Product use issue [Unknown]
  - Menstrual discomfort [Unknown]
